FAERS Safety Report 10544317 (Version 1)
Quarter: 2014Q4

REPORT INFORMATION
  Report Type: Spontaneous
  Country: FR (occurrence: FR)
  Receive Date: 20141027
  Receipt Date: 20141027
  Transmission Date: 20150529
  Serious: Yes (Hospitalization, Other)
  Sender: FDA-Public Use
  Company Number: FR-BAXTER-2014BAX062290

PATIENT
  Age: 7 Year
  Sex: Male
  Weight: 26.8 kg

DRUGS (3)
  1. ALFENTANIL [Suspect]
     Active Substance: ALFENTANIL
     Indication: ANAESTHESIA PROCEDURE
     Dosage: 20 GAMMA/KG
     Route: 042
     Dates: start: 20140919, end: 20140919
  2. DROLEPTAN [Suspect]
     Active Substance: DROPERIDOL
     Indication: ANAESTHESIA PROCEDURE
     Dosage: 0.05 GAMMA
     Route: 042
     Dates: start: 20140919, end: 20140919
  3. SEVOFLURANE BAXTER 1 ML/ML, LIQUIDE POUR INHALATION PAR VAPEUR [Suspect]
     Active Substance: SEVOFLURANE
     Indication: ANAESTHESIA PROCEDURE
     Route: 055
     Dates: start: 20140919, end: 20140919

REACTIONS (4)
  - Dyskinesia [Recovered/Resolved]
  - Musculoskeletal stiffness [Recovered/Resolved]
  - Extrapyramidal disorder [Recovered/Resolved]
  - Eye movement disorder [Recovered/Resolved]

NARRATIVE: CASE EVENT DATE: 20140919
